FAERS Safety Report 7751666-X (Version None)
Quarter: 2011Q3

REPORT INFORMATION
  Report Type: 
  Country: None (occurrence: None)
  Receive Date: 20110914
  Receipt Date: 20110829
  Transmission Date: 20111222
  Serious: Yes (Hospitalization)
  Sender: FDA-Public Use
  Company Number: PHHO2011FR14725

PATIENT
  Sex: Female
  Weight: 60 kg

DRUGS (4)
  1. IMATINIB MESYLATE [Suspect]
     Indication: ACUTE LYMPHOCYTIC LEUKAEMIA
     Dosage: 800 MG, QD
     Route: 048
     Dates: start: 20100331, end: 20100428
  2. METOCLOPRAMIDE [Suspect]
     Dosage: UNK
  3. DEXAMETHASONE [Concomitant]
     Dosage: 40 MG, DAY 1, 2, 8, 9, 15, 16, 22 AND 23
     Route: 048
     Dates: start: 20100331, end: 20100422
  4. ONCOVIN [Suspect]
     Dosage: 2 MG, DAY 1, 8, 15, 22
     Route: 042
     Dates: start: 20100331, end: 20100421

REACTIONS (1)
  - INAPPROPRIATE ANTIDIURETIC HORMONE SECRETION [None]
